FAERS Safety Report 6369822-4 (Version None)
Quarter: 2009Q3

REPORT INFORMATION
  Report Type: 
  Country: None (occurrence: None)
  Receive Date: 20090923
  Receipt Date: 20090914
  Transmission Date: 20100115
  Serious: Yes (Other)
  Sender: FDA-Public Use
  Company Number: FR-ASTRAZENECA-2009SE13265

PATIENT
  Age: 6085 Day
  Sex: Male

DRUGS (30)
  1. INEXIUM [Suspect]
     Route: 042
     Dates: start: 20090728
  2. ARACYTHINE [Suspect]
     Indication: MYELOID LEUKAEMIA
     Route: 037
     Dates: start: 20090726, end: 20090726
  3. ARACYTHINE [Suspect]
     Route: 037
     Dates: start: 20090803, end: 20090803
  4. ARACYTHINE [Suspect]
     Route: 042
     Dates: start: 20090726, end: 20090801
  5. METHOTREXATE TEVA [Suspect]
     Indication: MYELOID LEUKAEMIA
     Route: 037
     Dates: start: 20090726, end: 20090726
  6. METHOTREXATE TEVA [Suspect]
     Route: 037
     Dates: start: 20090803, end: 20090803
  7. MITOXANTRONE MERCK [Suspect]
     Route: 042
     Dates: start: 20090726, end: 20090730
  8. METHYLPREDNISOLONE MYLAN [Suspect]
     Indication: MYELOID LEUKAEMIA
     Route: 037
     Dates: start: 20090726, end: 20090726
  9. METHYLPREDNISOLONE MYLAN [Suspect]
     Route: 037
     Dates: start: 20090803, end: 20090803
  10. TAZOCILLINE [Suspect]
     Indication: PYREXIA
     Route: 042
     Dates: start: 20090725, end: 20090806
  11. TARGOCID [Suspect]
     Indication: PYREXIA
     Route: 042
     Dates: start: 20090725
  12. CANCIDAS [Suspect]
     Indication: PYREXIA
     Route: 042
     Dates: start: 20090726, end: 20090809
  13. GENTAMICINE PANPHARMA [Suspect]
     Indication: PYREXIA
     Route: 042
     Dates: start: 20090728
  14. FUNGIZONE [Suspect]
     Route: 048
     Dates: start: 20090728
  15. CIPROFLOXACINE PANPHARMA [Suspect]
     Indication: PYREXIA
     Route: 042
     Dates: start: 20090802
  16. TIORFAN [Suspect]
     Route: 048
     Dates: start: 20090731
  17. METRONIDAZOLE B BRAUN [Suspect]
     Route: 042
     Dates: start: 20090803, end: 20090806
  18. BACTRIM [Suspect]
     Indication: PNEUMOCYSTIS JIROVECI PNEUMONIA
     Route: 048
     Dates: start: 20090804
  19. ACYCLOVIR [Suspect]
     Indication: PYREXIA
     Route: 042
     Dates: start: 20090805
  20. TIENAM [Suspect]
     Indication: PYREXIA
     Route: 042
     Dates: start: 20090807, end: 20090815
  21. CONTRAMAL [Suspect]
     Indication: PAIN
     Route: 042
     Dates: start: 20090807, end: 20090809
  22. ONDANSETRON RENAUDIN [Concomitant]
     Indication: NAUSEA
     Route: 042
  23. PLITICAN [Concomitant]
     Indication: NAUSEA
     Route: 042
  24. AMIKACINE MYIAN [Concomitant]
     Indication: PYREXIA
     Route: 042
     Dates: start: 20090725, end: 20090726
  25. NALBUPHINE RENADIN [Concomitant]
     Indication: PAIN
     Route: 042
     Dates: start: 20090730, end: 20090803
  26. PULMICORT-100 [Concomitant]
     Route: 055
     Dates: start: 20090730, end: 20090731
  27. SPASFON [Concomitant]
     Route: 042
     Dates: start: 20090731, end: 20090802
  28. TRANXENE [Concomitant]
     Indication: ANXIETY
     Route: 042
     Dates: start: 20090804
  29. EFFERALGAN [Concomitant]
     Indication: PAIN
     Route: 048
     Dates: start: 20090725
  30. FASTURTEC [Concomitant]
     Route: 042
     Dates: start: 20090725, end: 20090727

REACTIONS (5)
  - CYTOTOXIC OEDEMA [None]
  - DYSARTHRIA [None]
  - EPILEPSY [None]
  - FACIAL PALSY [None]
  - HEMIPLEGIA [None]
